FAERS Safety Report 15061281 (Version 1)
Quarter: 2018Q2

REPORT INFORMATION
  Report Type: Spontaneous
  Country: US (occurrence: US)
  Receive Date: 20180625
  Receipt Date: 20180625
  Transmission Date: 20180711
  Serious: Yes (Hospitalization)
  Sender: FDA-Public Use
  Company Number: US-ROCHE-2040264

PATIENT
  Age: 32 Year
  Sex: Female

DRUGS (7)
  1. 5-FU [Suspect]
     Active Substance: FLUOROURACIL
     Indication: COLORECTAL CANCER
     Route: 065
  2. CAPECITABINE. [Suspect]
     Active Substance: CAPECITABINE
     Indication: COLORECTAL CANCER STAGE IV
     Dosage: TWO-THIRDS OF THE RECOMMENDED DOSE) WITH A 2-WEEK ON/1-WEEK
     Route: 048
  3. CAPECITABINE. [Suspect]
     Active Substance: CAPECITABINE
     Dosage: CYCLE 2
     Route: 048
  4. LEUKOVORIN [Concomitant]
     Active Substance: LEUCOVORIN SODIUM
     Route: 065
  5. CAPECITABINE. [Suspect]
     Active Substance: CAPECITABINE
     Dosage: ONE-THIRD OF THE RECOMMENDED DOSE
     Route: 048
  6. IRINOTECAN [Concomitant]
     Active Substance: IRINOTECAN
     Route: 065
  7. BEVACIZUMAB. [Concomitant]
     Active Substance: BEVACIZUMAB
     Dosage: CYCLE 5
     Route: 048

REACTIONS (3)
  - Chest pain [Recovered/Resolved]
  - Palpitations [Recovered/Resolved]
  - Dyspnoea [Recovered/Resolved]
